FAERS Safety Report 26042628 (Version 2)
Quarter: 2025Q4

REPORT INFORMATION
  Report Type: Spontaneous
  Country: US (occurrence: US)
  Receive Date: 20251113
  Receipt Date: 20251121
  Transmission Date: 20260118
  Serious: Yes (Other)
  Sender: MALLINCKRODT
  Company Number: US-MALLINCKRODT-MNK202506948

PATIENT
  Age: 58 Year
  Sex: Female
  Weight: 199 kg

DRUGS (5)
  1. CORTICOTROPIN [Suspect]
     Active Substance: CORTICOTROPIN
     Indication: Systemic lupus erythematosus
     Route: 058
     Dates: start: 202311
  2. BENLYSTA [Concomitant]
     Active Substance: BELIMUMAB
     Dosage: UNKNOWN
  3. TARPEYO [Concomitant]
     Active Substance: BUDESONIDE
     Dosage: UNKNOWN
  4. CANNABIS SATIVA SUBSP. INDICA TOP [Concomitant]
     Active Substance: CANNABIS SATIVA SUBSP. INDICA TOP
     Dosage: UNKNOWN
  5. MELATONIN [Concomitant]
     Active Substance: MELATONIN
     Dosage: UNKNOWN

REACTIONS (8)
  - Ligament sprain [Unknown]
  - Pain [Unknown]
  - Obesity [Unknown]
  - Mobility decreased [Unknown]
  - Memory impairment [Not Recovered/Not Resolved]
  - Frustration tolerance decreased [Not Recovered/Not Resolved]
  - Fatigue [Unknown]
  - Injection site bruising [Unknown]

NARRATIVE: CASE EVENT DATE: 20251101
